FAERS Safety Report 15338510 (Version 2)
Quarter: 2018Q3

REPORT INFORMATION
  Report Type: Spontaneous
  Country: US (occurrence: US)
  Receive Date: 20180831
  Receipt Date: 20180924
  Transmission Date: 20181010
  Serious: Yes (Other)
  Sender: FDA-Public Use
  Company Number: US-ALLERGAN-1841260US

PATIENT
  Age: 80 Year
  Sex: Female

DRUGS (5)
  1. LINZESS [Suspect]
     Active Substance: LINACLOTIDE
     Indication: CONSTIPATION
     Dosage: 145 ?G, UNK
     Route: 048
     Dates: start: 20180822
  2. 2?3 STOOL SOFTENERS [Concomitant]
     Indication: CONSTIPATION
     Dosage: UNK, QPM
     Route: 048
  3. VALIUM [Concomitant]
     Active Substance: DIAZEPAM
     Indication: SLEEP DISORDER
     Dosage: UNK UNK, QHS
     Route: 048
  4. VALIUM [Concomitant]
     Active Substance: DIAZEPAM
     Indication: FEELING OF RELAXATION
  5. LINZESS [Suspect]
     Active Substance: LINACLOTIDE
     Dosage: 145 ?G, UNK
     Route: 048
     Dates: start: 201808, end: 201808

REACTIONS (8)
  - Drug dose omission [Unknown]
  - Tension [Recovering/Resolving]
  - Musculoskeletal pain [Recovering/Resolving]
  - Large intestinal obstruction [Unknown]
  - Muscle spasms [Recovered/Resolved]
  - Intentional dose omission [Unknown]
  - Musculoskeletal stiffness [Recovering/Resolving]
  - Therapeutic response decreased [Unknown]

NARRATIVE: CASE EVENT DATE: 201808
